FAERS Safety Report 21695609 (Version 1)
Quarter: 2022Q4

REPORT INFORMATION
  Report Type: Spontaneous
  Country: US (occurrence: None)
  Receive Date: 20221207
  Receipt Date: 20221207
  Transmission Date: 20230113
  Serious: No
  Sender: FDA-Public Use
  Company Number: None

PATIENT
  Age: 33 Year
  Sex: Female

DRUGS (2)
  1. METHYLPHENIDATE [Suspect]
     Active Substance: METHYLPHENIDATE
     Indication: Attention deficit hyperactivity disorder
     Dosage: OTHER QUANTITY : 11 TABLET(S);?
     Route: 048
     Dates: start: 20221114, end: 20221117
  2. magnesium - 300mg per day [Concomitant]

REACTIONS (2)
  - Palpitations [None]
  - Psychotic disorder [None]

NARRATIVE: CASE EVENT DATE: 20221114
